FAERS Safety Report 6856721-4 (Version None)
Quarter: 2010Q2

REPORT INFORMATION
  Report Type: 
  Country: None (occurrence: None)
  Receive Date: 20100630
  Receipt Date: 20100401
  Transmission Date: 20101027
  Serious: No
  Sender: FDA-Public Use
  Company Number: 1000012966

PATIENT
  Age: 83 Year
  Sex: Female

DRUGS (3)
  1. BYSTOLIC [Suspect]
     Indication: HYPERTENSION
     Dosage: 5  MG (5 MG,1 IN 1 D), ORAL
     Route: 048
     Dates: start: 20100318
  2. ZOCOR [Concomitant]
  3. PREVACID (20 MILLIGRAM) [Concomitant]

REACTIONS (1)
  - INSOMNIA [None]
